FAERS Safety Report 9206197 (Version 4)
Quarter: 2013Q2

REPORT INFORMATION
  Report Type: Spontaneous
  Country: US (occurrence: US)
  Receive Date: 20130403
  Receipt Date: 20130507
  Transmission Date: 20140414
  Serious: No
  Sender: FDA-Public Use
  Company Number: US-PFIZER INC-2013102503

PATIENT
  Age: 82 Year
  Sex: Male
  Weight: 80.73 kg

DRUGS (2)
  1. FLECTOR [Suspect]
     Indication: SCIATIC NERVE NEUROPATHY
     Dosage: 1 PATCH EVERY 12 H
     Dates: start: 20130326, end: 20130328
  2. FLECTOR [Suspect]
     Dosage: UNK, EVERY 12 HOURS
     Dates: start: 20130326, end: 20130328

REACTIONS (3)
  - Rash [Not Recovered/Not Resolved]
  - Product colour issue [Unknown]
  - Drug hypersensitivity [Unknown]
